FAERS Safety Report 13608114 (Version 1)
Quarter: 2017Q2

REPORT INFORMATION
  Report Type: Spontaneous
  Country: JP (occurrence: JP)
  Receive Date: 20170602
  Receipt Date: 20170602
  Transmission Date: 20170830
  Serious: Yes (Other)
  Sender: FDA-Public Use
  Company Number: JP-PFIZER INC-2017236521

PATIENT
  Age: 72 Year
  Sex: Male
  Weight: 79 kg

DRUGS (17)
  1. LYRICA [Suspect]
     Active Substance: PREGABALIN
     Indication: PAIN IN EXTREMITY
     Dosage: 75 MG, DAILY
  2. BESACOLIN [Suspect]
     Active Substance: BETHANECHOL CHLORIDE
     Indication: URINARY RETENTION
     Route: 048
  3. LYRICA [Suspect]
     Active Substance: PREGABALIN
     Indication: PAIN IN EXTREMITY
  4. WARFARIN [Concomitant]
     Active Substance: WARFARIN
  5. BIOFERMIN /07746301/ [Concomitant]
  6. ADALAT CC [Concomitant]
     Active Substance: NIFEDIPINE
  7. UBRETID [Suspect]
     Active Substance: DISTIGMINE BROMIDE
     Indication: URINARY RETENTION
     Route: 048
  8. VASOLAN [Concomitant]
     Active Substance: VERAPAMIL HYDROCHLORIDE
  9. JANUVIA [Concomitant]
     Active Substance: SITAGLIPTIN PHOSPHATE
  10. NEUROTROPIN [Concomitant]
     Active Substance: NEUROTROPIN
  11. DEPAKENE [Concomitant]
     Active Substance: VALPROIC ACID
  12. URIEF [Concomitant]
     Active Substance: SILODOSIN
  13. LYRICA [Suspect]
     Active Substance: PREGABALIN
     Indication: BACK PAIN
     Dosage: 150 MG, DAILY
     Route: 048
     Dates: start: 201603
  14. LANSOPRAZOLE. [Concomitant]
     Active Substance: LANSOPRAZOLE
  15. LYRICA [Suspect]
     Active Substance: PREGABALIN
     Indication: BACK PAIN
     Dosage: 75 MG, DAILY
     Route: 048
     Dates: start: 201603
  16. METLIGINE [Concomitant]
     Active Substance: MIDODRINE HYDROCHLORIDE
  17. ASPARA POTASSIUM [Concomitant]
     Active Substance: POTASSIUM ASPARTATE

REACTIONS (13)
  - Dysuria [Unknown]
  - Withdrawal syndrome [Recovered/Resolved]
  - Anxiety [Unknown]
  - Musculoskeletal pain [Unknown]
  - Salivary hypersecretion [Unknown]
  - Headache [Unknown]
  - Abdominal pain upper [Unknown]
  - Insomnia [Unknown]
  - Diarrhoea [Unknown]
  - Hyperhidrosis [Unknown]
  - Intentional product misuse [Unknown]
  - Cholinergic syndrome [Unknown]
  - Nausea [Unknown]
